FAERS Safety Report 6832218-2 (Version None)
Quarter: 2010Q3

REPORT INFORMATION
  Report Type: 
  Country: None (occurrence: None)
  Receive Date: 20100707
  Receipt Date: 20100625
  Transmission Date: 20110219
  Serious: Yes (Hospitalization)
  Sender: FDA-Public Use
  Company Number: 2010MA000319

PATIENT
  Sex: Male

DRUGS (3)
  1. DILTIAZEM HYDROCHLORIDE [Suspect]
  2. DOXAZOSIN MESYLATE [Suspect]
  3. RAMIPRIL [Suspect]

REACTIONS (2)
  - DISCOMFORT [None]
  - LOSS OF CONSCIOUSNESS [None]
